FAERS Safety Report 5248553-8 (Version None)
Quarter: 2007Q1

REPORT INFORMATION
  Report Type: 
  Country: None (occurrence: None)
  Receive Date: 20070222
  Receipt Date: 20070219
  Transmission Date: 20070707
  Serious: Yes (Death, Other)
  Sender: FDA-Public Use
  Company Number: 2007SP002214

PATIENT
  Age: 77 Year
  Sex: Male

DRUGS (3)
  1. TEMODAL [Suspect]
     Indication: GLIOBLASTOMA MULTIFORME
     Dosage: 140 MG;QD;PO
     Route: 048
     Dates: start: 20061121, end: 20070103
  2. FERON (CON.) [Concomitant]
  3. RADIOTHERAPY (CON.) [Concomitant]

REACTIONS (3)
  - PLATELET COUNT DECREASED [None]
  - SEPSIS [None]
  - WHITE BLOOD CELL COUNT DECREASED [None]
